FAERS Safety Report 12147194 (Version 1)
Quarter: 2016Q1

REPORT INFORMATION
  Report Type: Spontaneous
  Country: US (occurrence: US)
  Receive Date: 20160304
  Receipt Date: 20160304
  Transmission Date: 20160526
  Serious: No
  Sender: FDA-Public Use
  Company Number: US-PFIZER INC-2016139817

PATIENT
  Sex: Female

DRUGS (7)
  1. OXYCODONE [Suspect]
     Active Substance: OXYCODONE
  2. CELEBREX [Suspect]
     Active Substance: CELECOXIB
  3. CEPHALEXIN. [Suspect]
     Active Substance: CEPHALEXIN
  4. MORPHINE SULFATE. [Suspect]
     Active Substance: MORPHINE SULFATE
  5. FENTANYL. [Suspect]
     Active Substance: FENTANYL
  6. HYDROCODONE [Suspect]
     Active Substance: HYDROCODONE
  7. CARISOPRODOL. [Suspect]
     Active Substance: CARISOPRODOL

REACTIONS (1)
  - Drug hypersensitivity [Unknown]
